FAERS Safety Report 5424215-9 (Version None)
Quarter: 2007Q3

REPORT INFORMATION
  Report Type: 
  Country: None (occurrence: None)
  Receive Date: 20070822
  Receipt Date: 20070810
  Transmission Date: 20080115
  Serious: Yes (Other)
  Sender: FDA-Public Use
  Company Number: 2007S1007559

PATIENT
  Age: 70 Year
  Sex: Female

DRUGS (5)
  1. PHENYTOIN SODIUM (PNEHYTOIN SODIUM) (100 MG) [Suspect]
     Indication: EPILEPSY
     Dosage: 300 MG; DAILY; ORAL
     Route: 048
  2. DEXIBUPROFEN (DEXIBUPROFEN) [Suspect]
     Indication: ARTHRALGIA
     Dosage: 800 MG; DAILY; ORAL
     Route: 048
  3. ASPIRIN [Concomitant]
  4. OMEPRAZOLE [Concomitant]
  5. ATORVASTATIN [Concomitant]

REACTIONS (9)
  - ARTHRALGIA [None]
  - DRUG INTERACTION [None]
  - DRUG TOXICITY [None]
  - NEUROTOXICITY [None]
  - NYSTAGMUS [None]
  - SOMNOLENCE [None]
  - VERTIGO [None]
  - VISION BLURRED [None]
  - XANTHOPSIA [None]
